FAERS Safety Report 6298666-7 (Version None)
Quarter: 2009Q3

REPORT INFORMATION
  Report Type: 
  Country: None (occurrence: None)
  Receive Date: 20090804
  Receipt Date: 20090720
  Transmission Date: 20100115
  Serious: Yes (Other)
  Sender: FDA-Public Use
  Company Number: 2009PV038695

PATIENT
  Age: 66 Year
  Sex: Female

DRUGS (3)
  1. SYMLIN [Suspect]
     Indication: TYPE 1 DIABETES MELLITUS
     Dosage: 15 MCG; TID; SC
     Route: 058
     Dates: start: 20090611, end: 20090701
  2. NOVOLOG [Concomitant]
  3. LANTUS [Concomitant]

REACTIONS (4)
  - BLINDNESS UNILATERAL [None]
  - EYE INFECTION [None]
  - EYE PRURITUS [None]
  - OCULAR HYPERAEMIA [None]
